FAERS Safety Report 4873435-0 (Version None)
Quarter: 2006Q1

REPORT INFORMATION
  Report Type: 
  Country: None (occurrence: None)
  Receive Date: 20060105
  Receipt Date: 20051229
  Transmission Date: 20060701
  Serious: Yes (Disabling)
  Sender: FDA-Public Use
  Company Number: IE-ABBOTT-05P-229-0320930-00

PATIENT
  Age: 55 Year
  Sex: Male

DRUGS (7)
  1. EPILIM CHRONO TABLET PR [Suspect]
     Indication: EPILEPSY
     Route: 048
  2. EPILIM CHRONO TABLET PR [Suspect]
     Route: 048
  3. WARFARIN [Concomitant]
     Indication: TRANSIENT ISCHAEMIC ATTACK
     Route: 065
  4. ASPIRIN [Concomitant]
     Indication: DRUG USE FOR UNKNOWN INDICATION
     Route: 065
  5. THYROXINE [Concomitant]
     Indication: DRUG USE FOR UNKNOWN INDICATION
     Route: 065
  6. HALOPERIDOL [Concomitant]
     Indication: PSYCHOTIC DISORDER
     Route: 065
  7. OLANZAPINE [Concomitant]
     Indication: PSYCHOTIC DISORDER
     Route: 065

REACTIONS (3)
  - EMOTIONAL DISTRESS [None]
  - HUNGER [None]
  - IRRITABILITY [None]
